FAERS Safety Report 23077583 (Version 2)
Quarter: 2024Q1

REPORT INFORMATION
  Report Type: Spontaneous
  Country: US (occurrence: None)
  Receive Date: 20231018
  Receipt Date: 20240327
  Transmission Date: 20240409
  Serious: Yes (Hospitalization)
  Sender: FDA-Public Use
  Company Number: US-Emmaus Medical, Inc.-EMM202310-000294

PATIENT
  Age: 7 Year
  Sex: Male
  Weight: 24.3 kg

DRUGS (3)
  1. ENDARI [Suspect]
     Active Substance: GLUTAMINE
     Indication: Thalassaemia sickle cell
     Dosage: 5 G
     Route: 048
     Dates: start: 20211029
  2. ENDARI [Suspect]
     Active Substance: GLUTAMINE
     Indication: Pain
     Dosage: 5 G
     Route: 048
     Dates: start: 202207
  3. HYDROXYUREA [Concomitant]
     Active Substance: HYDROXYUREA
     Indication: Product used for unknown indication
     Dosage: 3.8 ML (380 MG)
     Route: 065

REACTIONS (3)
  - Viral infection [Recovered/Resolved]
  - Therapy interrupted [Unknown]
  - Product availability issue [Unknown]

NARRATIVE: CASE EVENT DATE: 20230910
